FAERS Safety Report 25982019 (Version 1)
Quarter: 2025Q4

REPORT INFORMATION
  Report Type: Spontaneous
  Country: EU (occurrence: EU)
  Receive Date: 20251031
  Receipt Date: 20251031
  Transmission Date: 20260117
  Serious: Yes (Hospitalization, Other)
  Sender: AUROBINDO
  Company Number: EU-AFSSAPS-AN2025001261

PATIENT
  Age: 91 Year
  Sex: Male

DRUGS (8)
  1. AMOXICILLIN [Suspect]
     Active Substance: AMOXICILLIN
     Indication: Bronchitis
     Dosage: 3 GRAM, ONCE A DAY
     Route: 048
     Dates: start: 20250924, end: 20250926
  2. FUROSEMIDE [Concomitant]
     Active Substance: FUROSEMIDE
     Indication: Product used for unknown indication
     Dosage: 40 MILLIGRAM, ONCE A DAY
     Route: 048
     Dates: end: 20251001
  3. PERINDOPRIL [Concomitant]
     Active Substance: PERINDOPRIL
     Indication: Product used for unknown indication
     Dosage: 2.5 MILLIGRAM, ONCE A DAY
     Route: 048
     Dates: end: 20250929
  4. VERAPAMIL [Concomitant]
     Active Substance: VERAPAMIL HYDROCHLORIDE
     Indication: Product used for unknown indication
     Dosage: 1 DOSAGE FORM, ONCE A DAY
     Route: 048
     Dates: end: 20250923
  5. XARELTO [Concomitant]
     Active Substance: RIVAROXABAN
     Indication: Product used for unknown indication
     Dosage: 1 DOSAGE FORM, ONCE A DAY
     Route: 048
  6. ATORVASTATIN [Concomitant]
     Active Substance: ATORVASTATIN
     Indication: Product used for unknown indication
     Dosage: 10 MILLIGRAM, ONCE A DAY
     Route: 048
  7. ALLOPURINOL [Concomitant]
     Active Substance: ALLOPURINOL
     Indication: Product used for unknown indication
     Dosage: 100 MILLIGRAM, ONCE A DAY
     Route: 048
     Dates: end: 20251001
  8. POTASSIUM CHLORIDE [Concomitant]
     Active Substance: POTASSIUM CHLORIDE
     Indication: Product used for unknown indication
     Dosage: 600 MILLIGRAM, ONCE A DAY
     Route: 048

REACTIONS (2)
  - Dermatitis exfoliative generalised [Recovering/Resolving]
  - Product prescribing error [Not Recovered/Not Resolved]

NARRATIVE: CASE EVENT DATE: 20250926
